FAERS Safety Report 24753891 (Version 1)
Quarter: 2024Q4

REPORT INFORMATION
  Report Type: Spontaneous
  Country: US (occurrence: US)
  Receive Date: 20241219
  Receipt Date: 20241219
  Transmission Date: 20250114
  Serious: Yes (Other)
  Sender: REGENERON
  Company Number: US-REGENERON PHARMACEUTICALS, INC.-2024-173813

PATIENT
  Sex: Female

DRUGS (3)
  1. EYLEA [Suspect]
     Active Substance: AFLIBERCEPT
     Indication: Neovascular age-related macular degeneration
     Dosage: UNK IN LEFT EYE; FORMULATION: UNKNOWN
  2. EYLEA [Suspect]
     Active Substance: AFLIBERCEPT
     Dosage: UNK, (ON TREATMENT FOR BOTH EYES)EVERY SIX WEEKS INTO RIGHT EYE; FORMULATION: UNKNOWN
     Dates: start: 2023
  3. EYLEA [Suspect]
     Active Substance: AFLIBERCEPT
     Dosage: UNK, EVERY SIX WEEKS INTO LEFT EYE; FORMULATION: UNKNOWN

REACTIONS (6)
  - Neovascular age-related macular degeneration [Unknown]
  - Dry age-related macular degeneration [Unknown]
  - Neovascular age-related macular degeneration [Unknown]
  - Disease progression [Unknown]
  - Visual impairment [Not Recovered/Not Resolved]
  - Drug ineffective [Unknown]
